FAERS Safety Report 14384529 (Version 2)
Quarter: 2018Q2

REPORT INFORMATION
  Report Type: Spontaneous
  Country: DE (occurrence: DE)
  Receive Date: 20180115
  Receipt Date: 20180618
  Transmission Date: 20180711
  Serious: Yes (Other)
  Sender: FDA-Public Use
  Company Number: DE-MYLANLABS-2018M1002882

PATIENT
  Sex: Female

DRUGS (2)
  1. GABAPENTIN. [Suspect]
     Active Substance: GABAPENTIN
     Indication: AGITATION
     Dosage: UNK (1200-3200MG/DAY, OVER SEVERAL WEEKS)
  2. GABAPENTIN. [Suspect]
     Active Substance: GABAPENTIN
     Indication: ANXIETY

REACTIONS (3)
  - Drug dependence [Unknown]
  - Drug withdrawal syndrome [Recovered/Resolved]
  - Drug abuse [Unknown]
